FAERS Safety Report 10590485 (Version 4)
Quarter: 2015Q2

REPORT INFORMATION
  Report Type: Spontaneous
  Country: US (occurrence: US)
  Receive Date: 20141118
  Receipt Date: 20150611
  Transmission Date: 20150821
  Serious: Yes (Hospitalization)
  Sender: FDA-Public Use
  Company Number: US-BAYER-2014-170341

PATIENT
  Age: 26 Year
  Sex: Female
  Weight: 52 kg

DRUGS (3)
  1. MIRENA [Suspect]
     Active Substance: LEVONORGESTREL
     Indication: CONTRACEPTION
     Dosage: 20 MCG/24HR, CONT
     Route: 015
     Dates: start: 200701, end: 200906
  2. LEVOTHYROXINE [Concomitant]
     Active Substance: LEVOTHYROXINE
     Indication: HYPOTHYROIDISM
     Dosage: 12 YEARS/2002
  3. LAMICTAL [Concomitant]
     Active Substance: LAMOTRIGINE
     Indication: MOOD SWINGS
     Dosage: UNK
     Dates: start: 2008, end: 2014

REACTIONS (12)
  - Vulvovaginal pain [None]
  - Bacterial vaginosis [None]
  - Device issue [None]
  - Emotional distress [None]
  - Infection [None]
  - Injury [None]
  - Device issue [None]
  - Anxiety [None]
  - Abdominal pain [None]
  - Depression [None]
  - Embedded device [None]
  - Genital haemorrhage [None]

NARRATIVE: CASE EVENT DATE: 2008
